FAERS Safety Report 18734319 (Version 1)
Quarter: 2021Q1

REPORT INFORMATION
  Report Type: Spontaneous
  Country: US (occurrence: US)
  Receive Date: 20210112
  Receipt Date: 20210112
  Transmission Date: 20210419
  Serious: Yes (Other)
  Sender: FDA-Public Use
  Company Number: None

PATIENT
  Age: 94 Year
  Sex: Female

DRUGS (6)
  1. POTASSIUM CHLORIDE 10MEQ [Concomitant]
     Active Substance: POTASSIUM CHLORIDE
  2. VITAMIN D 5000 UNITS [Concomitant]
  3. B12 1000MCG [Concomitant]
  4. DULOXETINE 30MG [Concomitant]
     Active Substance: DULOXETINE
  5. SYNTHROID [Concomitant]
     Active Substance: LEVOTHYROXINE SODIUM
  6. BAMLANIVIMAB. [Suspect]
     Active Substance: BAMLANIVIMAB
     Indication: SARS-COV-2 TEST POSITIVE
     Dosage: ?          OTHER FREQUENCY:ONCE;?
     Route: 041

REACTIONS (2)
  - Pulmonary congestion [None]
  - Confusional state [None]

NARRATIVE: CASE EVENT DATE: 20201230
